FAERS Safety Report 7492475-9 (Version None)
Quarter: 2011Q2

REPORT INFORMATION
  Report Type: 
  Country: None (occurrence: None)
  Receive Date: 20110519
  Receipt Date: 20110511
  Transmission Date: 20111010
  Serious: Yes (Other)
  Sender: FDA-Public Use
  Company Number: US-BAXTER-2011BH016431

PATIENT
  Age: 49 Year
  Sex: Male

DRUGS (1)
  1. IFOSFAMIDE [Suspect]
     Indication: B-CELL LYMPHOMA
     Route: 065

REACTIONS (2)
  - MYOCLONUS [None]
  - ASTERIXIS [None]
